FAERS Safety Report 5947380-3 (Version None)
Quarter: 2008Q4

REPORT INFORMATION
  Report Type: 
  Country: None (occurrence: None)
  Receive Date: 20081110
  Receipt Date: 20081029
  Transmission Date: 20090506
  Serious: Yes (Hospitalization, Other)
  Sender: FDA-Public Use
  Company Number: US-PFIZER INC-2008091865

PATIENT
  Sex: Female
  Weight: 54 kg

DRUGS (5)
  1. CHANTIX [Suspect]
     Indication: EX-TOBACCO USER
     Dates: start: 20071201
  2. ALL OTHER THERAPEUTIC PRODUCTS [Concomitant]
     Indication: HORMONE THERAPY
  3. DIURETICS [Concomitant]
  4. ATENOLOL [Concomitant]
  5. OXAZEPAM [Concomitant]
     Indication: ANXIETY

REACTIONS (8)
  - BLOOD PRESSURE DECREASED [None]
  - EMOTIONAL DISORDER [None]
  - HYPOTHYROIDISM [None]
  - INTESTINAL OBSTRUCTION [None]
  - MEDICATION ERROR [None]
  - NAUSEA [None]
  - PAIN [None]
  - STRESS [None]
